FAERS Safety Report 4460812-5 (Version None)
Quarter: 2004Q3

REPORT INFORMATION
  Report Type: 
  Country: None (occurrence: None)
  Receive Date: 20040928
  Receipt Date: 20040809
  Transmission Date: 20050211
  Serious: No
  Sender: FDA-Public Use
  Company Number: US-GLAXOSMITHKLINE-A0521543A

PATIENT
  Age: 83 Year
  Sex: Male

DRUGS (4)
  1. ADVAIR DISKUS 100/50 [Suspect]
     Indication: ILL-DEFINED DISORDER
     Route: 055
     Dates: start: 20040805, end: 20040807
  2. AVAPRO [Concomitant]
  3. CARDURA [Concomitant]
  4. ZYRTEC [Concomitant]

REACTIONS (1)
  - DRY MOUTH [None]
